FAERS Safety Report 25085929 (Version 1)
Quarter: 2025Q1

REPORT INFORMATION
  Report Type: Spontaneous
  Country: PL (occurrence: PL)
  Receive Date: 20250317
  Receipt Date: 20250317
  Transmission Date: 20250409
  Serious: Yes (Life-Threatening)
  Sender: AMERICAN REGENT
  Company Number: PL-AMERICAN REGENT INC-2025001099

PATIENT
  Age: 94 Year
  Sex: Male
  Weight: 60 kg

DRUGS (2)
  1. VENOFER [Suspect]
     Active Substance: IRON SUCROSE
     Indication: Anaemia
     Route: 042
     Dates: start: 20210624, end: 20210624
  2. VENOFER [Suspect]
     Active Substance: IRON SUCROSE
     Indication: Cardiac failure

REACTIONS (5)
  - Tachycardia [Recovered/Resolved]
  - Shock [Recovered/Resolved]
  - Presyncope [Recovered/Resolved]
  - Diarrhoea [Recovered/Resolved]
  - Off label use [Unknown]

NARRATIVE: CASE EVENT DATE: 20210624
